FAERS Safety Report 22042314 (Version 1)
Quarter: 2023Q1

REPORT INFORMATION
  Report Type: Report from Study
  Country: US (occurrence: US)
  Receive Date: 20230227
  Receipt Date: 20230227
  Transmission Date: 20230418
  Serious: Yes (Other)
  Sender: FDA-Public Use
  Company Number: US-JNJFOC-20230246031

PATIENT
  Age: 6 Decade
  Sex: Male

DRUGS (3)
  1. SPRAVATO [Suspect]
     Active Substance: ESKETAMINE
     Indication: Major depression
     Dosage: ^56 MG, 2 TOTAL DOSES^
     Dates: start: 20221227, end: 20221229
  2. SPRAVATO [Suspect]
     Active Substance: ESKETAMINE
     Indication: Depression
     Dosage: ^84 MG, 10 TOTAL DOSES^?RECENT DOSE ON 20-FEB-2023
     Dates: start: 20230105, end: 20230213
  3. VALIUM [Concomitant]
     Active Substance: DIAZEPAM

REACTIONS (6)
  - Major depression [Unknown]
  - Gastrointestinal disorder [Unknown]
  - Weight decreased [Unknown]
  - Abnormal behaviour [Unknown]
  - Stress [Unknown]
  - Sleep disorder [Unknown]
